FAERS Safety Report 23789696 (Version 1)
Quarter: 2024Q2

REPORT INFORMATION
  Report Type: Spontaneous
  Country: US (occurrence: None)
  Receive Date: 20240426
  Receipt Date: 20240426
  Transmission Date: 20240715
  Serious: No
  Sender: FDA-Public Use
  Company Number: None

PATIENT
  Age: 45 Year
  Sex: Male

DRUGS (1)
  1. CEFTRIAXONE SODIUM [Suspect]
     Active Substance: CEFTRIAXONE SODIUM
     Dosage: FREQUENCY : ONCE;?
     Route: 030
     Dates: start: 20230510, end: 20230510

REACTIONS (3)
  - Rash [None]
  - Pruritus [None]
  - Injection related reaction [None]

NARRATIVE: CASE EVENT DATE: 20230510
